FAERS Safety Report 8386149-X (Version None)
Quarter: 2012Q2

REPORT INFORMATION
  Report Type: 
  Country: None (occurrence: None)
  Receive Date: 20120525
  Receipt Date: 20120524
  Transmission Date: 20120825
  Serious: Yes (Other)
  Sender: FDA-Public Use
  Company Number: US-JNJFOC-20090801277

PATIENT
  Sex: Female

DRUGS (3)
  1. TYLENOL (CAPLET) [Suspect]
     Indication: PAIN
     Route: 048
     Dates: start: 20020101, end: 20020301
  2. TYLENOL (CAPLET) [Suspect]
     Route: 048
  3. DILANTIN [Concomitant]
     Route: 065

REACTIONS (4)
  - LIVER INJURY [None]
  - SKIN DISCOLOURATION [None]
  - ANGIOPATHY [None]
  - SKIN HYPERTROPHY [None]
